FAERS Safety Report 11422527 (Version 1)
Quarter: 2015Q3

REPORT INFORMATION
  Report Type: Report from Study
  Country: US (occurrence: US)
  Receive Date: 20150827
  Receipt Date: 20150827
  Transmission Date: 20151125
  Serious: Yes (Hospitalization)
  Sender: FDA-Public Use
  Company Number: US-BIOGENIDEC-2015BI114861

PATIENT
  Sex: Female

DRUGS (1)
  1. PLEGRIDY [Suspect]
     Active Substance: PEGINTERFERON BETA-1A
     Indication: MULTIPLE SCLEROSIS
     Dates: start: 20150730

REACTIONS (7)
  - Injection site bruising [Unknown]
  - Nausea [Unknown]
  - Dizziness [Unknown]
  - Injection site pain [Unknown]
  - Urinary tract infection [Unknown]
  - Influenza like illness [Unknown]
  - Injection site rash [Unknown]
